FAERS Safety Report 20771688 (Version 2)
Quarter: 2022Q2

REPORT INFORMATION
  Report Type: Report from Study
  Country: US (occurrence: US)
  Receive Date: 20220430
  Receipt Date: 20220607
  Transmission Date: 20220721
  Serious: No
  Sender: FDA-Public Use
  Company Number: US-NOVARTISTESTPH-NVSC2022US099994

PATIENT
  Sex: Female

DRUGS (1)
  1. ENTRESTO [Suspect]
     Active Substance: SACUBITRIL\VALSARTAN
     Indication: Product used for unknown indication
     Dosage: 1 DOSAGE FORM, BID (ONE TABLET AM AND ONE HALF TABLET PM)
     Route: 065
     Dates: start: 202112

REACTIONS (3)
  - Blood pressure decreased [Unknown]
  - Fatigue [Unknown]
  - Wrong technique in product usage process [Unknown]
